FAERS Safety Report 6455843-X (Version None)
Quarter: 2009Q4

REPORT INFORMATION
  Report Type: 
  Country: None (occurrence: None)
  Receive Date: 20091125
  Receipt Date: 20091118
  Transmission Date: 20100525
  Serious: Yes (Other)
  Sender: FDA-Public Use
  Company Number: ES-RANBAXY-2009RR-29190

PATIENT
  Age: 50 Year
  Sex: Female

DRUGS (13)
  1. ALPRAZOLAM [Suspect]
     Dosage: 8 MG, UNK
  2. PARACETAMOL [Suspect]
     Indication: HEADACHE
     Dosage: UNK
  3. IBUPROFEN [Suspect]
     Indication: HEADACHE
     Dosage: UNK
  4. CLORAZEPATE DIPOTASSIUM [Suspect]
     Dosage: 40 MG, QD
  5. CLONAZEPAM [Suspect]
     Dosage: UNK
  6. DULOXETINE HYDROCHLORIDE [Concomitant]
     Dosage: 60 MG, UNK
  7. LITHIUM CARBONATE [Concomitant]
     Indication: BIPOLAR DISORDER
     Dosage: 800 MG, UNK
  8. CLOMIPRAMINE [Concomitant]
     Dosage: 10 MG, UNK
  9. QUETIAPINE [Concomitant]
     Dosage: 200 MG, UNK
  10. CLONAZEPAM [Concomitant]
     Dosage: 6 MG, UNK
  11. CLORAZEPATE DIPOTASSIUM [Concomitant]
     Dosage: 20 MG, UNK
  12. PAROXETINE HCL [Concomitant]
  13. PREGABALIN [Concomitant]

REACTIONS (2)
  - DRUG ABUSE [None]
  - HEADACHE [None]
